FAERS Safety Report 14541192 (Version 1)
Quarter: 2018Q1

REPORT INFORMATION
  Report Type: Spontaneous
  Country: GB (occurrence: GB)
  Receive Date: 20180216
  Receipt Date: 20180216
  Transmission Date: 20180509
  Serious: Yes (Other)
  Sender: FDA-Public Use
  Company Number: GB-OTSUKA-DJ20107060

PATIENT
  Age: 64 Year
  Sex: Female

DRUGS (2)
  1. FLUPENTIXOL DECANOATE [Concomitant]
     Active Substance: FLUPENTIXOL DECANOATE
     Indication: PRODUCT USED FOR UNKNOWN INDICATION
     Dosage: UNK
     Route: 065
  2. ABILIFY [Suspect]
     Active Substance: ARIPIPRAZOLE
     Indication: SCHIZOPHRENIA
     Dosage: 10 MG, UNK
     Route: 048
     Dates: start: 20100722, end: 20101126

REACTIONS (3)
  - Jaundice [Unknown]
  - Chromaturia [Unknown]
  - Abdominal pain [Recovered/Resolved]

NARRATIVE: CASE EVENT DATE: 20101126
